FAERS Safety Report 8033508-0 (Version None)
Quarter: 2012Q1

REPORT INFORMATION
  Report Type: 
  Country: None (occurrence: None)
  Receive Date: 20120110
  Receipt Date: 20120103
  Transmission Date: 20120608
  Serious: Yes (Death, Hospitalization)
  Sender: FDA-Public Use
  Company Number: NZ-CELGENEUS-118-20785-11110243

PATIENT
  Sex: Male

DRUGS (12)
  1. FUROSEMIDE [Concomitant]
     Route: 065
  2. TERBUTALINE [Concomitant]
     Route: 065
  3. THALIDOMIDE [Suspect]
     Dosage: 50 MILLIGRAM
     Route: 048
  4. QUINAPRIL [Concomitant]
     Route: 065
  5. BINIFIBRATE [Concomitant]
     Route: 065
  6. ALLOPURINOL [Concomitant]
     Route: 065
  7. TRANEXAMIC ACID [Concomitant]
     Route: 065
  8. OMEPRAZOLE [Concomitant]
     Route: 065
  9. METOPROLOL SUCCINATE [Concomitant]
     Route: 065
  10. ZOPICLONE [Concomitant]
     Route: 065
  11. TEGRETOL [Concomitant]
     Route: 065
  12. SPAN K [Concomitant]
     Route: 065

REACTIONS (1)
  - GASTRIC PERFORATION [None]
